FAERS Safety Report 5060667-4 (Version None)
Quarter: 2006Q3

REPORT INFORMATION
  Report Type: 
  Country: None (occurrence: None)
  Receive Date: 20060719
  Receipt Date: 20060719
  Transmission Date: 20061208
  Serious: Yes (Hospitalization)
  Sender: FDA-Public Use
  Company Number: None

PATIENT
  Sex: Female
  Weight: 51.7101 kg

DRUGS (1)
  1. CIPROFLOXACIN [Suspect]
     Indication: URINARY TRACT INFECTION
     Dosage: 250 MG TWICE A DAY PO
     Route: 048
     Dates: start: 20060121, end: 20060128

REACTIONS (4)
  - DEPRESSION [None]
  - DISORIENTATION [None]
  - FALL [None]
  - PULMONARY THROMBOSIS [None]
